FAERS Safety Report 10065522 (Version 1)
Quarter: 2014Q2

REPORT INFORMATION
  Report Type: Spontaneous
  Country: US (occurrence: US)
  Receive Date: 20140408
  Receipt Date: 20140408
  Transmission Date: 20141212
  Serious: No
  Sender: FDA-Public Use
  Company Number: US-B.I. PHARMACEUTICALS,INC./RIDGEFIELD-2014-BI-13610BP

PATIENT
  Sex: Male
  Weight: 82 kg

DRUGS (1)
  1. COMBIVENT [Suspect]
     Indication: ASTHMA
     Dosage: FORMULATION: INHALATION AEROSOL; DOSE PER APPLICATION: 18 MCG / 103 MCG
     Route: 055
     Dates: start: 2009, end: 201112

REACTIONS (1)
  - Off label use [Unknown]
